FAERS Safety Report 12377055 (Version 1)
Quarter: 2016Q2

REPORT INFORMATION
  Report Type: Report from Study
  Country: US (occurrence: US)
  Receive Date: 20160517
  Receipt Date: 20160517
  Transmission Date: 20160815
  Serious: No
  Sender: FDA-Public Use
  Company Number: US-MALLINCKRODT-T201504075

PATIENT
  Age: 48 Year
  Sex: Female
  Weight: 63 kg

DRUGS (3)
  1. REPOSITORY CORTICOTROPIN INJECTION [Suspect]
     Active Substance: CORTICOTROPIN
     Indication: SYSTEMIC LUPUS ERYTHEMATOSUS
     Dosage: 40 UNITS TWICE A WEEK
     Route: 058
     Dates: start: 20150824, end: 20150915
  2. METHOTREXATE [Concomitant]
     Active Substance: METHOTREXATE
     Dosage: INJECTION UNK
  3. REMICADE [Concomitant]
     Active Substance: INFLIXIMAB

REACTIONS (6)
  - Rash [Unknown]
  - Alopecia [Unknown]
  - Injection site warmth [Recovered/Resolved]
  - Injection site induration [Recovered/Resolved]
  - Dysgeusia [Recovered/Resolved]
  - Injection site erythema [Recovered/Resolved]

NARRATIVE: CASE EVENT DATE: 2015
